FAERS Safety Report 23686529 (Version 1)
Quarter: 2024Q1

REPORT INFORMATION
  Report Type: Spontaneous
  Country: GB (occurrence: GB)
  Receive Date: 20240329
  Receipt Date: 20240329
  Transmission Date: 20240410
  Serious: Yes (Other)
  Sender: FDA-Public Use
  Company Number: None

PATIENT
  Age: 25 Year
  Sex: Female
  Weight: 51 kg

DRUGS (2)
  1. AVELOX [Suspect]
     Active Substance: MOXIFLOXACIN HYDROCHLORIDE
     Indication: Ear infection
     Dosage: 50 MG, QD
     Route: 048
     Dates: start: 20231014, end: 20231015
  2. NIMESULIDE [Concomitant]
     Active Substance: NIMESULIDE
     Indication: Arthralgia

REACTIONS (5)
  - Fatigue [Recovering/Resolving]
  - Arthralgia [Recovering/Resolving]
  - Dizziness [Recovering/Resolving]
  - Anxiety [Recovering/Resolving]
  - Gastrointestinal pain [Recovered/Resolved with Sequelae]

NARRATIVE: CASE EVENT DATE: 20231014
